FAERS Safety Report 9496606 (Version 1)
Quarter: 2013Q3

REPORT INFORMATION
  Report Type: Spontaneous
  Country: JP (occurrence: JP)
  Receive Date: 20130904
  Receipt Date: 20130904
  Transmission Date: 20140515
  Serious: Yes (Death)
  Sender: FDA-Public Use
  Company Number: JP-ASTELLAS-2013US009251

PATIENT
  Age: 39 Year
  Sex: Female

DRUGS (2)
  1. AMBISOME [Suspect]
     Indication: PRODUCT USED FOR UNKNOWN INDICATION
     Dosage: 2.5 MG/KG, UNKNOWN/D
     Route: 042
     Dates: start: 20130818, end: 20130820
  2. FUNGUARD [Concomitant]
     Indication: PROPHYLAXIS
     Dosage: UNK
     Route: 065
     Dates: start: 20130818

REACTIONS (2)
  - Hepatic failure [Fatal]
  - Sepsis [Fatal]
